FAERS Safety Report 5918248-3 (Version None)
Quarter: 2008Q4

REPORT INFORMATION
  Report Type: 
  Country: None (occurrence: None)
  Receive Date: 20081014
  Receipt Date: 20081014
  Transmission Date: 20090506
  Serious: Yes (Hospitalization, Other)
  Sender: FDA-Public Use
  Company Number: AU-ABBOTT-08P-008-0458964-00

PATIENT
  Age: 47 Year
  Sex: Male

DRUGS (2)
  1. LOPINAVIR AND RITONAVIR [Suspect]
     Indication: DRUG USE FOR UNKNOWN INDICATION
     Dosage: 270 CAPSULES 200MG/50MG
  2. WARFARIN SODIUM [Suspect]
     Indication: DRUG USE FOR UNKNOWN INDICATION
     Dosage: NOT REPORTED

REACTIONS (9)
  - ABDOMINAL PAIN [None]
  - DIARRHOEA [None]
  - DRUG TOXICITY [None]
  - HEADACHE [None]
  - INTERNATIONAL NORMALISED RATIO INCREASED [None]
  - OVERDOSE [None]
  - RASH ERYTHEMATOUS [None]
  - RASH PRURITIC [None]
  - VOMITING [None]
